FAERS Safety Report 21669967 (Version 1)
Quarter: 2022Q4

REPORT INFORMATION
  Report Type: Report from Study
  Country: FR (occurrence: FR)
  Receive Date: 20221201
  Receipt Date: 20221201
  Transmission Date: 20230113
  Serious: Yes (Congenital Anomaly, Other)
  Sender: FDA-Public Use
  Company Number: FR-SA-2022SA396362

PATIENT
  Sex: Male

DRUGS (1)
  1. VALPROIC ACID [Suspect]
     Active Substance: VALPROIC ACID
     Indication: Maternal exposure timing unspecified
     Route: 064

REACTIONS (35)
  - Sensory processing disorder [Not Recovered/Not Resolved]
  - Dyscalculia [Not Recovered/Not Resolved]
  - Tic [Not Recovered/Not Resolved]
  - Asthma [Not Recovered/Not Resolved]
  - Dyslexia [Not Recovered/Not Resolved]
  - Reading disorder [Not Recovered/Not Resolved]
  - Asthenia [Not Recovered/Not Resolved]
  - Muscle twitching [Not Recovered/Not Resolved]
  - Otitis media chronic [Not Recovered/Not Resolved]
  - Eye movement disorder [Not Recovered/Not Resolved]
  - Behaviour disorder [Not Recovered/Not Resolved]
  - Oxygen saturation decreased [Not Recovered/Not Resolved]
  - Scoliosis [Not Recovered/Not Resolved]
  - Toe walking [Not Recovered/Not Resolved]
  - Congenital eye disorder [Not Recovered/Not Resolved]
  - Personality disorder [Not Recovered/Not Resolved]
  - Physical disability [Not Recovered/Not Resolved]
  - Congenital anomaly [Not Recovered/Not Resolved]
  - Unevaluable event [Not Recovered/Not Resolved]
  - Disinhibition [Not Recovered/Not Resolved]
  - Cyanosis [Not Recovered/Not Resolved]
  - Infantile spasms [Not Recovered/Not Resolved]
  - Intellectual disability [Not Recovered/Not Resolved]
  - Disturbance in attention [Not Recovered/Not Resolved]
  - Dysmorphism [Not Recovered/Not Resolved]
  - Autism spectrum disorder [Not Recovered/Not Resolved]
  - Cognitive disorder [Not Recovered/Not Resolved]
  - Bradycardia [Not Recovered/Not Resolved]
  - Conductive deafness [Not Recovered/Not Resolved]
  - Developmental delay [Not Recovered/Not Resolved]
  - Speech disorder [Not Recovered/Not Resolved]
  - Foetal anticonvulsant syndrome [Not Recovered/Not Resolved]
  - Seizure [Not Recovered/Not Resolved]
  - Drug withdrawal syndrome neonatal [Not Recovered/Not Resolved]
  - Foetal exposure during pregnancy [Recovered/Resolved]

NARRATIVE: CASE EVENT DATE: 20080213
